FAERS Safety Report 22920868 (Version 2)
Quarter: 2023Q4

REPORT INFORMATION
  Report Type: Report from Study
  Country: PR (occurrence: PR)
  Receive Date: 20230908
  Receipt Date: 20231106
  Transmission Date: 20240110
  Serious: Yes (Other)
  Sender: FDA-Public Use
  Company Number: PR-ABBVIE-5398607

PATIENT
  Sex: Female
  Weight: 70.76 kg

DRUGS (4)
  1. HUMIRA [Suspect]
     Active Substance: ADALIMUMAB
     Indication: Psoriatic arthropathy
     Dosage: 40MG/0.4ML?FORM STRENGTH: 40 MG?LAST ADMIN DATE: 2023
     Route: 058
     Dates: start: 20230519
  2. ELASOMERAN [Concomitant]
     Active Substance: ELASOMERAN
     Indication: COVID-19
     Dosage: 3RD DOSE?ONE IN ONCE
     Route: 030
     Dates: start: 20211206, end: 20211206
  3. ELASOMERAN [Concomitant]
     Active Substance: ELASOMERAN
     Indication: COVID-19
     Dosage: 2ND DOSE?ONE IN ONCE
     Route: 030
     Dates: start: 20210520, end: 20210520
  4. ELASOMERAN [Concomitant]
     Active Substance: ELASOMERAN
     Indication: COVID-19
     Dosage: 1ST DOSE?ONE IN ONCE
     Route: 030
     Dates: start: 20210422, end: 20210422

REACTIONS (5)
  - Benign breast neoplasm [Not Recovered/Not Resolved]
  - Purpura [Unknown]
  - Post procedural contusion [Not Recovered/Not Resolved]
  - Urinary tract infection [Recovered/Resolved]
  - Rash papular [Unknown]

NARRATIVE: CASE EVENT DATE: 20230101
